FAERS Safety Report 24535800 (Version 1)
Quarter: 2024Q4

REPORT INFORMATION
  Report Type: Report from Study
  Country: US (occurrence: US)
  Receive Date: 20241022
  Receipt Date: 20241022
  Transmission Date: 20250115
  Serious: Yes (Other)
  Sender: JAZZ
  Company Number: US-JAZZ PHARMACEUTICALS-2023-US-019286

PATIENT
  Age: 60 Year
  Sex: Male

DRUGS (1)
  1. SODIUM OXYBATE [Suspect]
     Active Substance: SODIUM OXYBATE
     Indication: Narcolepsy
     Dosage: 4.5 GRAM, BID

REACTIONS (3)
  - Knee arthroplasty [Recovering/Resolving]
  - Arthroscopic surgery [Unknown]
  - Colonoscopy [Unknown]

NARRATIVE: CASE EVENT DATE: 20240816
